FAERS Safety Report 16923325 (Version 2)
Quarter: 2019Q4

REPORT INFORMATION
  Report Type: Spontaneous
  Country: DE (occurrence: DE)
  Receive Date: 20191016
  Receipt Date: 20191126
  Transmission Date: 20200122
  Serious: No
  Sender: FDA-Public Use
  Company Number: DE-ROCHE-2436190

PATIENT
  Age: 24 Year
  Sex: Female
  Weight: 65 kg

DRUGS (1)
  1. OCREVUS [Suspect]
     Active Substance: OCRELIZUMAB
     Indication: RELAPSING-REMITTING MULTIPLE SCLEROSIS
     Route: 065
     Dates: start: 201810

REACTIONS (7)
  - Hyperpathia [Unknown]
  - Fructose intolerance [Unknown]
  - Selective IgG subclass deficiency [Not Recovered/Not Resolved]
  - Infection [Recovered/Resolved]
  - Strabismus [Unknown]
  - Thyroid disorder [Unknown]
  - Blood immunoglobulin M decreased [Unknown]

NARRATIVE: CASE EVENT DATE: 201905
